FAERS Safety Report 19594717 (Version 1)
Quarter: 2021Q3

REPORT INFORMATION
  Report Type: Spontaneous
  Country: US (occurrence: US)
  Receive Date: 20210722
  Receipt Date: 20210722
  Transmission Date: 20211014
  Serious: Yes (Other)
  Sender: FDA-Public Use
  Company Number: US-TEVA-2021-US-1933581

PATIENT
  Age: 19 Year
  Sex: Male

DRUGS (5)
  1. VALPROIC ACID. [Suspect]
     Active Substance: VALPROIC ACID
     Indication: SEIZURE
     Route: 065
  2. AFINITOR [Suspect]
     Active Substance: EVEROLIMUS
     Indication: ASTROCYTOMA, LOW GRADE
     Route: 065
  3. AFINITOR [Suspect]
     Active Substance: EVEROLIMUS
     Indication: TUBEROUS SCLEROSIS COMPLEX
  4. LITHIUM. [Suspect]
     Active Substance: LITHIUM
     Indication: BEHAVIOURAL THERAPY
     Route: 065
  5. PALIPERIDONE. [Suspect]
     Active Substance: PALIPERIDONE
     Indication: BEHAVIOURAL THERAPY
     Route: 065

REACTIONS (3)
  - Weight increased [Not Recovered/Not Resolved]
  - Dyslipidaemia [Recovering/Resolving]
  - Type 1 diabetes mellitus [Recovering/Resolving]
